FAERS Safety Report 7273046-6 (Version None)
Quarter: 2011Q1

REPORT INFORMATION
  Report Type: 
  Country: None (occurrence: None)
  Receive Date: 20110203
  Receipt Date: 20110127
  Transmission Date: 20110831
  Serious: Yes (Other)
  Sender: FDA-Public Use
  Company Number: B0697747A

PATIENT
  Sex: Female

DRUGS (5)
  1. NAVOBAN [Concomitant]
     Route: 065
  2. NORVASC [Concomitant]
     Route: 065
  3. EUTIROX [Concomitant]
     Route: 065
  4. LANSOX [Concomitant]
     Route: 065
  5. ZOFRAN [Suspect]
     Route: 030
     Dates: start: 20110122

REACTIONS (3)
  - RESPIRATORY TRACT IRRITATION [None]
  - HICCUPS [None]
  - CHOKING [None]
